FAERS Safety Report 10652357 (Version 2)
Quarter: 2015Q1

REPORT INFORMATION
  Report Type: Report from Study
  Country: EG (occurrence: EG)
  Receive Date: 20141215
  Receipt Date: 20150129
  Transmission Date: 20150720
  Serious: Yes (Death)
  Sender: FDA-Public Use
  Company Number: EG-SA-2014SA170563

PATIENT
  Age: 61 Year
  Sex: Male

DRUGS (1)
  1. LANTUS [Suspect]
     Active Substance: INSULIN GLARGINE
     Indication: TYPE 2 DIABETES MELLITUS
     Route: 058
     Dates: start: 20130822

REACTIONS (3)
  - Hepatitis C [Fatal]
  - Hepatic failure [Fatal]
  - Varicose vein [Unknown]

NARRATIVE: CASE EVENT DATE: 2013
